FAERS Safety Report 8791585 (Version 1)
Quarter: 2012Q4

REPORT INFORMATION
  Report Type: Spontaneous
  Country: US (occurrence: None)
  Receive Date: 20120913
  Receipt Date: 20120913
  Transmission Date: 20130627
  Serious: Yes (Death, Hospitalization)
  Sender: FDA-Public Use
  Company Number: 2008US000786

PATIENT
  Age: 58 Year
  Sex: Male

DRUGS (6)
  1. PROGRAF [Suspect]
     Indication: RENAL TRANSPLANT
     Route: 048
  2. PROGRAF [Suspect]
     Indication: RENAL TRANSPLANT
     Dosage: 1mg qam, 2mg qpm
     Route: 048
     Dates: start: 20080303, end: 20080319
  3. PROGRAF [Suspect]
     Indication: RENAL TRANSPLANT
     Route: 048
  4. PROGRAF [Suspect]
     Indication: RENAL TRANSPLANT
     Dosage: 4 mg, qam, unk mg qpm
     Route: 048
     Dates: start: 20080319
  5. PROGRAF [Suspect]
     Indication: RENAL TRANSPLANT
     Route: 048
  6. MYFORTIC [Suspect]

REACTIONS (4)
  - Drug ineffective [None]
  - Kidney transplant rejection [None]
  - Treatment noncompliance [None]
  - Incorrect dose administered [None]
